FAERS Safety Report 6634080-X (Version None)
Quarter: 2010Q1

REPORT INFORMATION
  Report Type: 
  Country: None (occurrence: None)
  Receive Date: 20100315
  Receipt Date: 20100301
  Transmission Date: 20100710
  Serious: No
  Sender: FDA-Public Use
  Company Number: US-B.I. PHARMACEUTICALS,INC./RIDGEFIELD-2010-BP-02492BP

PATIENT
  Sex: Male

DRUGS (1)
  1. ZANTAC [Suspect]

REACTIONS (2)
  - ANORECTAL DISCOMFORT [None]
  - BURN OF INTERNAL ORGANS [None]
